FAERS Safety Report 6101982-2 (Version None)
Quarter: 2009Q1

REPORT INFORMATION
  Report Type: 
  Country: None (occurrence: None)
  Receive Date: 20090304
  Receipt Date: 20090219
  Transmission Date: 20090719
  Serious: Yes (Other)
  Sender: FDA-Public Use
  Company Number: BR-PFIZER INC-2009173305

PATIENT

DRUGS (1)
  1. FRONTAL [Suspect]
     Indication: PANIC DISORDER
     Dosage: INTERVAL: EVERY DAY
     Route: 048

REACTIONS (4)
  - BLOOD PRESSURE INCREASED [None]
  - FEELING HOT [None]
  - PERIPHERAL COLDNESS [None]
  - WRONG TECHNIQUE IN DRUG USAGE PROCESS [None]
